FAERS Safety Report 5234870-4 (Version None)
Quarter: 2007Q1

REPORT INFORMATION
  Report Type: 
  Country: None (occurrence: None)
  Receive Date: 20070209
  Receipt Date: 20070208
  Transmission Date: 20070707
  Serious: Yes (Other)
  Sender: FDA-Public Use
  Company Number: AU-MERCK-0702AUS00040

PATIENT
  Age: 42 Year
  Sex: Male

DRUGS (2)
  1. ALENDRONATE SODIUM [Suspect]
     Indication: BONE DISORDER
     Route: 048
     Dates: start: 20030415, end: 20060607
  2. CALCIUM CARBONATE [Concomitant]
     Indication: BONE DISORDER
     Route: 048
     Dates: start: 20030415

REACTIONS (1)
  - OSTEONECROSIS [None]
